FAERS Safety Report 5835053-7 (Version None)
Quarter: 2008Q3

REPORT INFORMATION
  Report Type: 
  Country: None (occurrence: None)
  Receive Date: 20080731
  Receipt Date: 20071029
  Transmission Date: 20090109
  Serious: Yes (Other)
  Sender: FDA-Public Use
  Company Number: US-JNJFOC-20071007930

PATIENT
  Age: 12 Month
  Sex: Male
  Weight: 9.9791 kg

DRUGS (1)
  1. MOTRIN [Suspect]
     Indication: PYREXIA
     Dosage: 75 MG, 2 IN 1 TOTAL
     Dates: start: 20071026, end: 20071027

REACTIONS (3)
  - EYE SWELLING [None]
  - SWELLING FACE [None]
  - WHEEZING [None]
